FAERS Safety Report 10430380 (Version 1)
Quarter: 2014Q3

REPORT INFORMATION
  Report Type: Spontaneous
  Country: NL (occurrence: None)
  Receive Date: 20140902
  Receipt Date: 20140902
  Transmission Date: 20150326
  Serious: Yes (Other)
  Sender: FDA-Public Use
  Company Number: NGX_02543_2014

PATIENT
  Sex: Female

DRUGS (1)
  1. QUTENZA [Suspect]
     Active Substance: CAPSAICIN
     Indication: OCCUPATIONAL EXPOSURE TO PRODUCT
     Dosage: CUTANEOUS PATCHES, DF
     Dates: start: 201408, end: 201408

REACTIONS (2)
  - Bronchospasm [None]
  - Chest discomfort [None]

NARRATIVE: CASE EVENT DATE: 201408
